FAERS Safety Report 9450976 (Version 2)
Quarter: 2013Q3

REPORT INFORMATION
  Report Type: Report from Study
  Country: TH (occurrence: TH)
  Receive Date: 20130809
  Receipt Date: 20130903
  Transmission Date: 20140515
  Serious: Yes (Death, Hospitalization)
  Sender: FDA-Public Use
  Company Number: TH-ROCHE-1258559

PATIENT
  Age: 64 Year
  Sex: Male

DRUGS (19)
  1. RHUPH20/RITUXIMAB [Suspect]
     Indication: DIFFUSE LARGE B-CELL LYMPHOMA
     Dosage: LAST DOSE PRIOR TO ONSET OF FEBRILE NEUTROPENIA:26/JUL/2013
     Route: 058
     Dates: start: 20130501
  2. CYCLOPHOSPHAMIDE [Suspect]
     Indication: DIFFUSE LARGE B-CELL LYMPHOMA
     Dosage: DATE OF LAST DOSE PRIOR TO SAE: 26/JUL/2013
     Route: 065
  3. DOXORUBICIN [Suspect]
     Indication: DIFFUSE LARGE B-CELL LYMPHOMA
     Dosage: DATE OF LAST DOSE PRIOR TO SAE: 26/JUL/2013
     Route: 065
  4. VINCRISTINE [Suspect]
     Indication: DIFFUSE LARGE B-CELL LYMPHOMA
     Dosage: DATE OF LAST DOSE PRIOR TO SAE: 26/JUL/2013
     Route: 065
  5. PREDNISOLONE [Suspect]
     Indication: DIFFUSE LARGE B-CELL LYMPHOMA
     Dosage: DATE OF LAST DOSE PRIOR TO SAE: 26/JUL/2013
     Route: 065
  6. LAMIVUDINE [Concomitant]
     Route: 065
     Dates: start: 20130501
  7. ACYCLOVIR [Concomitant]
     Route: 048
     Dates: start: 20130501
  8. ONDANSETRON [Concomitant]
     Indication: PROPHYLAXIS
     Route: 042
     Dates: start: 20130501
  9. ONDANSETRON [Concomitant]
     Indication: PREMEDICATION
  10. CHLORPHENIRAMINE [Concomitant]
     Indication: PROPHYLAXIS
     Route: 042
     Dates: start: 20130501
  11. CHLORPHENIRAMINE [Concomitant]
     Indication: PREMEDICATION
  12. HYDROCORTISONE [Concomitant]
     Indication: PROPHYLAXIS
     Route: 042
     Dates: start: 20130501
  13. HYDROCORTISONE [Concomitant]
     Indication: PREMEDICATION
     Dosage: TREATMENT FOR EVENT
     Route: 065
     Dates: start: 20130803, end: 20130804
  14. NEULASTIM [Concomitant]
     Indication: PROPHYLAXIS
     Route: 058
     Dates: start: 20130502
  15. NEULASTIM [Concomitant]
     Indication: NEUTROPENIA
  16. OMEPRAZOLE [Concomitant]
     Indication: PROPHYLAXIS
     Route: 048
     Dates: start: 20130401
  17. OMEPRAZOLE [Concomitant]
     Indication: PREMEDICATION
  18. PARACETAMOL [Concomitant]
     Indication: PROPHYLAXIS
     Route: 048
     Dates: start: 20130501
  19. PARACETAMOL [Concomitant]
     Indication: PREMEDICATION

REACTIONS (1)
  - Febrile neutropenia [Fatal]
